FAERS Safety Report 21499642 (Version 1)
Quarter: 2022Q4

REPORT INFORMATION
  Report Type: Spontaneous
  Country: US (occurrence: None)
  Receive Date: 20221024
  Receipt Date: 20221024
  Transmission Date: 20230112
  Serious: Yes (Other)
  Sender: FDA-Public Use
  Company Number: None

PATIENT
  Age: 73 Year
  Sex: Male

DRUGS (3)
  1. ERAVACYCLINE [Suspect]
     Active Substance: ERAVACYCLINE
     Indication: Mycobacterium abscessus infection
  2. Imipenem-Cilistatin [Concomitant]
  3. LINEZOLID [Concomitant]
     Active Substance: LINEZOLID

REACTIONS (2)
  - Hypofibrinogenaemia [None]
  - Complications of transplanted lung [None]
